FAERS Safety Report 7545949-6 (Version None)
Quarter: 2011Q2

REPORT INFORMATION
  Report Type: 
  Country: None (occurrence: None)
  Receive Date: 20110614
  Receipt Date: 20110601
  Transmission Date: 20111010
  Serious: Yes (Hospitalization)
  Sender: FDA-Public Use
  Company Number: PHHY2011DE48211

PATIENT
  Age: 68 Year
  Sex: Male

DRUGS (3)
  1. IBANDRONATE SODIUM [Concomitant]
  2. CORTISONE ACETATE [Concomitant]
  3. ZOMETA [Suspect]
     Indication: PROSTATE CANCER
     Dosage: UNK
     Dates: start: 20030901, end: 20050801

REACTIONS (1)
  - OSTEONECROSIS OF JAW [None]
